FAERS Safety Report 8727027 (Version 5)
Quarter: 2013Q4

REPORT INFORMATION
  Report Type: Spontaneous
  Country: JP (occurrence: JP)
  Receive Date: 20120816
  Receipt Date: 20131121
  Transmission Date: 20140711
  Serious: Yes (Hospitalization, Disabling, Other)
  Sender: FDA-Public Use
  Company Number: JP-GILEAD-2012-0059770

PATIENT
  Age: 69 Year
  Sex: Female
  Weight: 43 kg

DRUGS (10)
  1. HEPSERA [Suspect]
     Indication: CHRONIC HEPATITIS B
     Dosage: 1
     Route: 048
     Dates: start: 20080307, end: 20120810
  2. HEPSERA [Suspect]
     Dosage: 1IUAX PER DAY
     Route: 048
     Dates: start: 20080307, end: 20120801
  3. ZEFIX [Suspect]
     Indication: CHRONIC HEPATITIS B
     Dosage: UNK
     Route: 048
     Dates: start: 20050415, end: 20120810
  4. LIPITOR [Concomitant]
     Indication: HYPERLIPIDAEMIA
     Route: 048
  5. LIPITOR [Concomitant]
     Dosage: 10MG PER DAY
     Route: 048
     Dates: start: 2008
  6. GASTER D [Concomitant]
     Indication: GASTRIC ULCER
     Dosage: 40MG PER DAY
     Route: 048
     Dates: start: 2008
  7. ZANTAC [Concomitant]
     Route: 065
  8. PURSENNID                          /00142207/ [Concomitant]
     Route: 048
  9. TRIAZOLAM [Concomitant]
     Route: 048
  10. FUROSEMIDE [Concomitant]
     Route: 065

REACTIONS (8)
  - Metastases to bone [Unknown]
  - Osteomalacia [Not Recovered/Not Resolved]
  - Fanconi syndrome acquired [Not Recovered/Not Resolved]
  - Compression fracture [Unknown]
  - Compression fracture [Unknown]
  - Back pain [Unknown]
  - Arthralgia [Unknown]
  - Blood alkaline phosphatase increased [Unknown]
